FAERS Safety Report 5382343-0 (Version None)
Quarter: 2007Q2

REPORT INFORMATION
  Report Type: 
  Country: None (occurrence: None)
  Receive Date: 20070629
  Receipt Date: 20070205
  Transmission Date: 20071010
  Serious: Yes (Other)
  Sender: FDA-Public Use
  Company Number: US200702001023

PATIENT
  Sex: Female

DRUGS (3)
  1. HUMALOG [Suspect]
     Indication: DIABETES MELLITUS
     Dosage: AS NEEDED
  2. HUMULIN N [Suspect]
     Indication: DIABETES MELLITUS
  3. LANTUS [Concomitant]

REACTIONS (3)
  - BLINDNESS [None]
  - BLOOD GLUCOSE DECREASED [None]
  - CEREBROVASCULAR ACCIDENT [None]
